FAERS Safety Report 18652745 (Version 1)
Quarter: 2020Q4

REPORT INFORMATION
  Report Type: Spontaneous
  Country: CN (occurrence: CN)
  Receive Date: 20201222
  Receipt Date: 20201222
  Transmission Date: 20210114
  Serious: Yes (Hospitalization, Other)
  Sender: FDA-Public Use
  Company Number: CN-BAXTER-2020BAX025827

PATIENT
  Age: 6 Year
  Sex: Male
  Weight: 26 kg

DRUGS (7)
  1. 5% GLUCOSE  INJECTION [Suspect]
     Active Substance: DEXTROSE
     Indication: MEDICATION DILUTION
     Dosage: VINCRISTINE SULFATE 1.5 MG + 5% GS 20 ML
     Route: 041
     Dates: start: 20201112, end: 20201112
  2. VINCRISTINE SULFATE. [Suspect]
     Active Substance: VINCRISTINE SULFATE
     Indication: NEOPLASM MALIGNANT
     Dosage: VINCRISTINE SULFATE 1.5 MG + 5% GS 20 ML
     Route: 041
     Dates: start: 20201112, end: 20201112
  3. 0.9% SODIUM CHLORIDE INJECTION [Suspect]
     Active Substance: SODIUM CHLORIDE
     Indication: MEDICATION DILUTION
     Dosage: ENDOXAN 2G + 0.9% NS 500 ML
     Route: 041
     Dates: start: 20201112, end: 20201112
  4. ENDOXAN [Suspect]
     Active Substance: CYCLOPHOSPHAMIDE
     Indication: NEOPLASM MALIGNANT
     Dosage: ENDOXAN 2G + 0.9% NS 500 ML
     Route: 041
     Dates: start: 20201112, end: 20201112
  5. UROMITEXAN [Suspect]
     Active Substance: MESNA
     Indication: NEOPLASM MALIGNANT
     Route: 041
     Dates: start: 20201112, end: 20201112
  6. DACTINOMYCIN [Suspect]
     Active Substance: DACTINOMYCIN
     Indication: NEOPLASM MALIGNANT
     Dosage: DACTINOMYCIN 1 MG + 5% GS 30 ML
     Route: 041
     Dates: start: 20201112, end: 20201112
  7. 5% GLUCOSE  INJECTION [Suspect]
     Active Substance: DEXTROSE
     Dosage: DACTINOMYCIN 1 MG + 5% GS 30 ML
     Route: 041
     Dates: start: 20201112, end: 20201112

REACTIONS (1)
  - Myelosuppression [Recovering/Resolving]

NARRATIVE: CASE EVENT DATE: 20201119
